FAERS Safety Report 4289412-7 (Version None)
Quarter: 2004Q1

REPORT INFORMATION
  Report Type: 
  Country: None (occurrence: None)
  Receive Date: 20040206
  Receipt Date: 20040126
  Transmission Date: 20041129
  Serious: Yes (Other)
  Sender: FDA-Public Use
  Company Number: 2004005566

PATIENT
  Age: 21 Year
  Sex: Female

DRUGS (1)
  1. RELPAX [Suspect]
     Indication: MIGRAINE
     Dosage: 40 MG (ONCE), ORAL
     Route: 048
     Dates: start: 20040124, end: 20040124

REACTIONS (4)
  - ANAPHYLACTIC REACTION [None]
  - MALAISE [None]
  - NAUSEA [None]
  - PAIN [None]
